FAERS Safety Report 8293923-7 (Version None)
Quarter: 2012Q2

REPORT INFORMATION
  Report Type: 
  Country: None (occurrence: None)
  Receive Date: 20120418
  Receipt Date: 20120412
  Transmission Date: 20120825
  Serious: No
  Sender: FDA-Public Use
  Company Number: US-PFIZER INC-2012092147

PATIENT
  Sex: Female

DRUGS (4)
  1. TETRACYCLINE HCL [Suspect]
     Dosage: UNK
  2. NEURONTIN [Suspect]
     Dosage: 300 MG, 3X/DAY
     Route: 048
  3. EFFEXOR XR [Suspect]
     Dosage: 75 MG
  4. TOPIRAMATE [Suspect]
     Dosage: UNK

REACTIONS (1)
  - DRUG HYPERSENSITIVITY [None]
